FAERS Safety Report 25504522 (Version 1)
Quarter: 2025Q3

REPORT INFORMATION
  Report Type: Spontaneous
  Country: GB (occurrence: GB)
  Receive Date: 20250702
  Receipt Date: 20250702
  Transmission Date: 20251020
  Serious: Yes (Other)
  Sender: PFIZER
  Company Number: GB-GSK-GB2025EME076154

PATIENT
  Age: 57 Year
  Sex: Female

DRUGS (3)
  1. CARBOPLATIN [Suspect]
     Active Substance: CARBOPLATIN
  2. PACLITAXEL [Suspect]
     Active Substance: PACLITAXEL
  3. DOSTARLIMAB [Suspect]
     Active Substance: DOSTARLIMAB

REACTIONS (3)
  - Endometrial cancer stage IV [Unknown]
  - Peritoneal neoplasm [Unknown]
  - Arthralgia [Unknown]
